FAERS Safety Report 9769077 (Version 1)
Quarter: 2013Q4

REPORT INFORMATION
  Report Type: Spontaneous
  Country: US (occurrence: None)
  Receive Date: 20131216
  Receipt Date: 20131216
  Transmission Date: 20140711
  Serious: Yes (Hospitalization)
  Sender: FDA-Public Use
  Company Number: 2013P1021789

PATIENT
  Age: 49 Year
  Sex: Male

DRUGS (3)
  1. CLINDAMYCIN [Suspect]
     Indication: SURGERY
     Dosage: 600 MG;Q6H; IV
  2. CLINDAMYCIN [Suspect]
     Indication: PROPHYLAXIS
     Dosage: 600 MG;Q6H; IV
  3. GENTAMYCIN [Concomitant]

REACTIONS (5)
  - Metabolic acidosis [None]
  - Renal failure [None]
  - Megacolon [None]
  - Hypoxia [None]
  - Pseudomembranous colitis [None]
